FAERS Safety Report 8805508 (Version 5)
Quarter: 2012Q4

REPORT INFORMATION
  Report Type: Report from Study
  Country: JP (occurrence: JP)
  Receive Date: 20120924
  Receipt Date: 20121115
  Transmission Date: 20130627
  Serious: Yes (Hospitalization)
  Sender: FDA-Public Use
  Company Number: JP-BAXTER-2012BAX017491

PATIENT
  Age: 43 Year
  Sex: Female
  Weight: 80.2 kg

DRUGS (12)
  1. ENDOXAN [Suspect]
     Indication: NODULAR (FOLLICULAR) LYMPHOMA
     Route: 042
     Dates: start: 20111130
  2. ENDOXAN [Suspect]
     Route: 042
     Dates: start: 20120313
  3. RITUXIMAB [Suspect]
     Indication: NODULAR (FOLLICULAR) LYMPHOMA
     Dosage: VOLUME OF 682.5 ML
     Route: 042
     Dates: start: 20111129
  4. RITUXIMAB [Suspect]
     Dosage: VOLUME OF 682.5 ML
     Route: 042
     Dates: start: 20120629
  5. DOXORUBICIN [Suspect]
     Indication: NODULAR (FOLLICULAR) LYMPHOMA
     Route: 042
     Dates: start: 20111130
  6. DOXORUBICIN [Suspect]
     Route: 042
     Dates: start: 20120313
  7. VINCRISTINE [Suspect]
     Indication: NODULAR (FOLLICULAR) LYMPHOMA
     Route: 042
  8. VINCRISTINE [Suspect]
     Route: 042
     Dates: start: 20120313
  9. PREDNISONE [Suspect]
     Indication: NODULAR (FOLLICULAR) LYMPHOMA
     Route: 042
     Dates: start: 20111129
  10. PREDNISONE [Suspect]
     Route: 042
     Dates: start: 20120317
  11. ACETAMINOPHEN [Concomitant]
     Indication: PREMEDICATION
     Route: 065
     Dates: start: 20111128
  12. CHLORPHENIRAMINE MALEATE [Concomitant]
     Indication: PREMEDICATION
     Route: 065
     Dates: start: 20111128

REACTIONS (1)
  - Pneumonia bacterial [Recovered/Resolved]
